FAERS Safety Report 6276260-1 (Version None)
Quarter: 2009Q3

REPORT INFORMATION
  Report Type: 
  Country: None (occurrence: None)
  Receive Date: 20090720
  Receipt Date: 20090708
  Transmission Date: 20100115
  Serious: Yes (Other)
  Sender: FDA-Public Use
  Company Number: 2008-01840

PATIENT
  Age: 74 Year
  Sex: Male
  Weight: 60 kg

DRUGS (4)
  1. VELCADE [Suspect]
     Indication: MULTIPLE MYELOMA
     Dosage: 2 MG, INTRAVENOUS; 1.5MG, INTRAVENOUS; INTRAVENOUS
     Route: 042
     Dates: start: 20070423, end: 20070730
  2. VELCADE [Suspect]
     Indication: MULTIPLE MYELOMA
     Dosage: 2 MG, INTRAVENOUS; 1.5MG, INTRAVENOUS; INTRAVENOUS
     Route: 042
     Dates: start: 20070813, end: 20070820
  3. VELCADE [Suspect]
     Indication: MULTIPLE MYELOMA
     Dosage: 2 MG, INTRAVENOUS; 1.5MG, INTRAVENOUS; INTRAVENOUS
     Route: 042
     Dates: start: 20080423
  4. DEXAMETHASONE [Concomitant]

REACTIONS (4)
  - NEUROPATHY PERIPHERAL [None]
  - PLATELET COUNT INCREASED [None]
  - PULMONARY ALVEOLAR HAEMORRHAGE [None]
  - WHITE BLOOD CELL COUNT DECREASED [None]
